FAERS Safety Report 10488139 (Version 3)
Quarter: 2014Q4

REPORT INFORMATION
  Report Type: Spontaneous
  Country: JP (occurrence: JP)
  Receive Date: 20141002
  Receipt Date: 20141016
  Transmission Date: 20150528
  Serious: Yes (Life-Threatening, Other)
  Sender: FDA-Public Use
  Company Number: JP-ROCHE-1467553

PATIENT
  Age: 41 Year
  Sex: Female
  Weight: 73 kg

DRUGS (6)
  1. FAMOTIDINE. [Concomitant]
     Active Substance: FAMOTIDINE
     Indication: PROPHYLAXIS
     Route: 048
  2. TEGRETOL [Concomitant]
     Active Substance: CARBAMAZEPINE
     Indication: EPILEPSY
     Route: 048
  3. FLORINEF ACETATE [Concomitant]
     Active Substance: FLUDROCORTISONE ACETATE
     Indication: ADRENAL INSUFFICIENCY
     Route: 048
  4. PREDONINE [Concomitant]
     Active Substance: PREDNISOLONE\PREDNISOLONE ACETATE\PREDNISOLONE SODIUM SUCCINATE
     Indication: BRAIN NEOPLASM
     Route: 048
  5. LAMICTAL [Concomitant]
     Active Substance: LAMOTRIGINE
     Indication: EPILEPSY
     Route: 048
  6. AVASTIN [Suspect]
     Active Substance: BEVACIZUMAB
     Indication: MALIGNANT GLIOMA
     Dosage: MOST RECENT DOSE:19/SEP/2014
     Route: 041
     Dates: start: 201307

REACTIONS (3)
  - Septic shock [Not Recovered/Not Resolved]
  - Adrenal insufficiency [Not Recovered/Not Resolved]
  - Adrenocortical insufficiency acute [Not Recovered/Not Resolved]

NARRATIVE: CASE EVENT DATE: 20140922
